FAERS Safety Report 5792971-6 (Version None)
Quarter: 2008Q2

REPORT INFORMATION
  Report Type: 
  Country: None (occurrence: None)
  Receive Date: 20080626
  Receipt Date: 20080626
  Transmission Date: 20081010
  Serious: Yes (Other)
  Sender: FDA-Public Use
  Company Number: None

PATIENT
  Age: 61 Year
  Sex: Male
  Weight: 101.1521 kg

DRUGS (2)
  1. MORPHINE SULFATE [Suspect]
     Indication: BACK PAIN
     Dosage: 30 MG 2 TABLETS 2 TIMES
     Dates: start: 20071220, end: 20080624
  2. MORPHINE SULFATE [Suspect]
     Indication: NECK PAIN
     Dosage: 30 MG 2 TABLETS 2 TIMES
     Dates: start: 20071220, end: 20080624

REACTIONS (5)
  - DEPRESSION [None]
  - INSOMNIA [None]
  - MOOD SWINGS [None]
  - PHARMACEUTICAL PRODUCT COMPLAINT [None]
  - SOMNOLENCE [None]
